FAERS Safety Report 4567202-5 (Version None)
Quarter: 2005Q1

REPORT INFORMATION
  Report Type: 
  Country: None (occurrence: None)
  Receive Date: 20050201
  Receipt Date: 20050118
  Transmission Date: 20050727
  Serious: Yes (Hospitalization)
  Sender: FDA-Public Use
  Company Number: 2005-01-0272

PATIENT
  Age: 65 Year
  Sex: Female

DRUGS (1)
  1. ALKERAN [Suspect]
     Indication: MULTIPLE MYELOMA
     Dosage: 200MG PER DAY
     Route: 042
     Dates: start: 20041124

REACTIONS (3)
  - DIARRHOEA [None]
  - ENTEROCOLITIS [None]
  - PYREXIA [None]
